FAERS Safety Report 9336004 (Version 2)
Quarter: 2013Q2

REPORT INFORMATION
  Report Type: Report from Study
  Country: US (occurrence: US)
  Receive Date: 20130607
  Receipt Date: 20130619
  Transmission Date: 20140414
  Serious: Yes (Hospitalization)
  Sender: FDA-Public Use
  Company Number: US-009507513-1306USA001602

PATIENT
  Age: 39 Year
  Sex: Female

DRUGS (3)
  1. VICTRELIS [Suspect]
     Indication: CHRONIC HEPATITIS C
     Dosage: MOST RECENT DOSE ON 20/FEB/2013 (2400 MG)
     Route: 048
     Dates: start: 20120921
  2. REBETOL [Suspect]
     Indication: CHRONIC HEPATITIS C
     Dosage: MOST RECENT DOSE ON 20/FEB/2013 (800 MG)
     Route: 048
     Dates: start: 20120824
  3. PEGINTERFERON ALFA-2A [Suspect]
     Indication: CHRONIC HEPATITIS C
     Dosage: MOST RECENT DOSE ON 15/FEB/2013 (180 MICROGRAM)
     Dates: start: 20120824, end: 20120824

REACTIONS (1)
  - Urinary tract infection [Recovered/Resolved]
